FAERS Safety Report 6626257-4 (Version None)
Quarter: 2010Q1

REPORT INFORMATION
  Report Type: 
  Country: None (occurrence: None)
  Receive Date: 20100310
  Receipt Date: 20100304
  Transmission Date: 20100710
  Serious: Yes (Life-Threatening, Hospitalization, Other)
  Sender: FDA-Public Use
  Company Number: US-BAXTER-2009BH019934

PATIENT
  Age: 90 Year
  Sex: Female
  Weight: 45 kg

DRUGS (7)
  1. HEPARIN SODIUM INJECTION [Suspect]
     Indication: DRUG USE FOR UNKNOWN INDICATION
     Route: 058
     Dates: start: 20071225
  2. MORPHINE SULFATE [Suspect]
     Indication: PAIN
     Route: 065
     Dates: start: 20071225
  3. ASPIRIN [Concomitant]
     Indication: DRUG USE FOR UNKNOWN INDICATION
     Route: 065
  4. ALPHAGAN [Concomitant]
     Indication: DRUG USE FOR UNKNOWN INDICATION
     Route: 065
  5. CARTEOLOL HYDROCHLORIDE [Concomitant]
     Indication: DRUG USE FOR UNKNOWN INDICATION
     Route: 065
  6. ALBUTEROL [Concomitant]
     Indication: DRUG USE FOR UNKNOWN INDICATION
     Route: 065
  7. DARVOCET-N 100 [Concomitant]
     Indication: DRUG USE FOR UNKNOWN INDICATION
     Route: 065

REACTIONS (13)
  - ASTHENIA [None]
  - DYSPHAGIA [None]
  - DYSPHONIA [None]
  - GAIT DISTURBANCE [None]
  - HAEMORRHAGE [None]
  - HEPARIN-INDUCED THROMBOCYTOPENIA [None]
  - HYPERSENSITIVITY [None]
  - HYPOTENSION [None]
  - OEDEMA MOUTH [None]
  - PAIN [None]
  - PHARYNGEAL OEDEMA [None]
  - RESPIRATORY ARREST [None]
  - SHOCK HAEMORRHAGIC [None]
